FAERS Safety Report 7291052-2 (Version None)
Quarter: 2011Q1

REPORT INFORMATION
  Report Type: 
  Country: None (occurrence: None)
  Receive Date: 20110214
  Receipt Date: 20110207
  Transmission Date: 20110831
  Serious: Yes (Other)
  Sender: FDA-Public Use
  Company Number: US-TEVA-266300USA

PATIENT
  Sex: Female

DRUGS (2)
  1. ACETYLSALICYLIC ACID [Concomitant]
     Dosage: BABY ASA
  2. ALENDRONAT SODIUM, TABLETS, 5MG, 10MG, 40MG, 35MG, 70MG [Suspect]
     Indication: BONE DENSITY DECREASED
     Route: 048
     Dates: start: 20090301

REACTIONS (5)
  - COLITIS ULCERATIVE [None]
  - RECTAL HAEMORRHAGE [None]
  - ABDOMINAL PAIN UPPER [None]
  - FLATULENCE [None]
  - FEELING ABNORMAL [None]
